FAERS Safety Report 6006085-3 (Version None)
Quarter: 2008Q4

REPORT INFORMATION
  Report Type: 
  Country: None (occurrence: None)
  Receive Date: 20081217
  Receipt Date: 20081208
  Transmission Date: 20090506
  Serious: Yes (Hospitalization)
  Sender: FDA-Public Use
  Company Number: DK-ELI_LILLY_AND_COMPANY-DK200811001791

PATIENT
  Sex: Male
  Weight: 116 kg

DRUGS (8)
  1. BYETTA [Suspect]
     Indication: TYPE 2 DIABETES MELLITUS
     Dosage: 5 UG, 2/D
     Route: 058
     Dates: start: 20080814, end: 20080909
  2. METFORMIN HCL [Concomitant]
     Dosage: UNK, UNKNOWN
     Route: 065
     Dates: start: 20050101
  3. METFORMIN HCL [Concomitant]
     Dosage: 1000 MG, 3/D
     Route: 065
  4. RAMIPRIL [Concomitant]
     Dosage: UNK, UNKNOWN
     Route: 065
     Dates: start: 20060101
  5. RAMIPRIL [Concomitant]
     Dosage: 10 MG, DAILY (1/D)
     Route: 065
  6. SIMVASTATIN [Concomitant]
     Dosage: UNK, UNKNOWN
     Route: 065
     Dates: start: 20050101
  7. SIMVASTATIN [Concomitant]
     Dosage: 40 MG, DAILY (1/D)
     Route: 065
  8. INSULIN [Concomitant]
     Dosage: UNK, UNKNOWN
     Route: 065

REACTIONS (4)
  - BLOOD URINE PRESENT [None]
  - COLITIS [None]
  - DEHYDRATION [None]
  - GASTROINTESTINAL INFLAMMATION [None]
